FAERS Safety Report 24892130 (Version 1)
Quarter: 2025Q1

REPORT INFORMATION
  Report Type: Spontaneous
  Country: AT (occurrence: AT)
  Receive Date: 20250128
  Receipt Date: 20250128
  Transmission Date: 20250409
  Serious: Yes (Other)
  Sender: PFIZER
  Company Number: AT-PFM-2025-00334

PATIENT

DRUGS (3)
  1. BRAFTOVI [Suspect]
     Active Substance: ENCORAFENIB
     Indication: Colorectal cancer
     Route: 065
  2. CETUXIMAB [Suspect]
     Active Substance: CETUXIMAB
     Indication: Colorectal cancer
     Route: 065
  3. PANITUMUMAB [Suspect]
     Active Substance: PANITUMUMAB
     Indication: Colorectal cancer

REACTIONS (3)
  - Anaphylactic shock [Unknown]
  - Off label use [Unknown]
  - Product use issue [Unknown]
